FAERS Safety Report 7938569 (Version 4)
Quarter: 2013Q3

REPORT INFORMATION
  Report Type: Spontaneous
  Country: CH (occurrence: None)
  Receive Date: 20110420
  Receipt Date: 20130723
  Transmission Date: 20140515
  Serious: Yes (Disabling, Other)
  Sender: FDA-Public Use
  Company Number: CH-005166

PATIENT
  Age: 48 Year
  Sex: Female

DRUGS (1)
  1. MINIRIN [Suspect]
     Indication: HAEMORRHAGE PROPHYLAXIS
     Dates: start: 20040212, end: 20040212

REACTIONS (4)
  - Anaesthetic complication neurological [None]
  - Cerebrovascular accident [None]
  - Cerebral infarction [None]
  - Ischaemic cerebral infarction [None]
